FAERS Safety Report 5820917-0 (Version None)
Quarter: 2008Q3

REPORT INFORMATION
  Report Type: 
  Country: None (occurrence: None)
  Receive Date: 20080724
  Receipt Date: 20080716
  Transmission Date: 20090109
  Serious: Yes (Hospitalization)
  Sender: FDA-Public Use
  Company Number: PHHO2008JP08670

PATIENT
  Weight: 48 kg

DRUGS (23)
  1. ICL670A ICL+DISTAB [Suspect]
     Indication: IRON OVERLOAD
     Dosage: 1000 MG, QD
     Route: 048
     Dates: start: 20080416, end: 20080501
  2. ICL670A ICL+DISTAB [Suspect]
     Dosage: NO TREATMENT
     Dates: start: 20080502, end: 20080507
  3. ICL670A ICL+DISTAB [Suspect]
     Dosage: 1000 MG, QD
     Route: 048
     Dates: start: 20080508, end: 20080512
  4. ICL670A ICL+DISTAB [Suspect]
     Dosage: NO TREATMENT
     Dates: start: 20080513, end: 20080610
  5. ICL670A ICL+DISTAB [Suspect]
     Dosage: 1000 MG, QD
     Route: 048
     Dates: start: 20080611
  6. FLUVOXAMINE MALEATE [Concomitant]
     Indication: NEUROSIS
  7. SEDIEL [Concomitant]
     Indication: NEUROSIS
  8. LENDORMIN [Concomitant]
     Indication: NEUROSIS
  9. ALFAROL [Concomitant]
     Indication: OSTEOPOROSIS
  10. FOLIAMIN [Concomitant]
     Indication: PORPHYRIA NON-ACUTE
  11. VITAMEDIN CAPSULE [Concomitant]
     Indication: SKIN ULCER
  12. JUVELA NICOTINATE [Concomitant]
     Indication: SKIN ULCER
  13. TAKEPRON [Concomitant]
     Indication: GASTRIC ULCER
  14. HICEE [Concomitant]
     Indication: PORPHYRIA NON-ACUTE
  15. MAGLAX [Concomitant]
     Indication: CONSTIPATION PROPHYLAXIS
  16. SOLETON [Concomitant]
     Indication: SKIN ULCER
  17. CLONAZEPAM [Concomitant]
     Indication: SKIN ULCER
  18. MYSLEE [Concomitant]
     Indication: NEUROSIS
  19. DEPAS [Concomitant]
     Indication: NEUROSIS
  20. HIRUDOID [Concomitant]
     Indication: SKIN ULCER
  21. PROMAC [Concomitant]
     Indication: SKIN ULCER
  22. AZUNOL [Concomitant]
     Indication: SKIN ULCER
  23. SANCOBA [Concomitant]
     Indication: ASTHENOPIA

REACTIONS (3)
  - NEUROSIS [None]
  - PAIN [None]
  - SKIN ULCER [None]
